FAERS Safety Report 8010007-3 (Version None)
Quarter: 2011Q4

REPORT INFORMATION
  Report Type: 
  Country: None (occurrence: None)
  Receive Date: 20111228
  Receipt Date: 20111214
  Transmission Date: 20120403
  Serious: Yes (Hospitalization, Other)
  Sender: FDA-Public Use
  Company Number: US-ELI_LILLY_AND_COMPANY-US201111000923

PATIENT
  Sex: Female
  Weight: 54.422 kg

DRUGS (10)
  1. VITAMIN D [Concomitant]
     Dosage: 5000 IU, QD
  2. EVISTA [Suspect]
     Indication: OSTEOPENIA
     Dosage: 60 MG, QD
     Dates: start: 20020101
  3. LISINOPRIL [Concomitant]
     Dosage: 5 MG, QD
  4. CALCIUM ACETATE [Concomitant]
     Dosage: 1200 MG, QD
  5. VITAMIN TAB [Concomitant]
  6. DIGOXIN [Concomitant]
     Dosage: 0.25 MG, QD
  7. CARVEDILOL [Concomitant]
     Dosage: 3.125 DF, BID
  8. VITAMIN C [Concomitant]
  9. POTASSIUM [Concomitant]
     Dosage: 10 DF, UNKNOWN
  10. FUROSEMIDE [Concomitant]

REACTIONS (2)
  - HIP FRACTURE [None]
  - VIRAL PERICARDITIS [None]
